FAERS Safety Report 7435171-6 (Version None)
Quarter: 2011Q2

REPORT INFORMATION
  Report Type: 
  Country: None (occurrence: None)
  Receive Date: 20110425
  Receipt Date: 20110420
  Transmission Date: 20111010
  Serious: Yes (Life-Threatening, Hospitalization)
  Sender: FDA-Public Use
  Company Number: PHHY2011FR33762

PATIENT
  Sex: Female

DRUGS (9)
  1. EXELON [Suspect]
     Dosage: 4.6 MG/ 24 HOURS
     Route: 062
     Dates: start: 20100517
  2. LAMICTAL [Suspect]
     Indication: ABNORMAL BEHAVIOUR
     Dosage: 25 MG, DAILY
     Route: 048
  3. LAMICTAL [Suspect]
     Indication: DEMENTIA
     Dosage: 50 MG, DAILY
     Route: 048
     Dates: start: 20110202
  4. EXELON [Suspect]
     Dosage: 9.5 MG/ 24 HOURS
     Route: 062
     Dates: start: 20110202, end: 20110209
  5. CORDARONE [Concomitant]
     Dosage: UNK
  6. KARDEGIC [Concomitant]
     Dosage: UNK
     Dates: end: 20110226
  7. XANAX [Concomitant]
     Dosage: UNK
     Dates: start: 20110202, end: 20110209
  8. LAMICTAL [Suspect]
     Dosage: 100 MG, DAILY
     Dates: start: 20110209
  9. EXELON [Suspect]
     Dosage: UNK
     Dates: start: 20110226

REACTIONS (7)
  - FALL [None]
  - COMA [None]
  - STATUS EPILEPTICUS [None]
  - SUBDURAL HAEMATOMA [None]
  - DYSURIA [None]
  - HYPERAMMONAEMIA [None]
  - URINARY RETENTION [None]
